FAERS Safety Report 6963595-X (Version None)
Quarter: 2010Q3

REPORT INFORMATION
  Report Type: 
  Country: None (occurrence: None)
  Receive Date: 20100902
  Receipt Date: 20100826
  Transmission Date: 20110219
  Serious: No
  Sender: FDA-Public Use
  Company Number: US-PFIZER INC-2010099552

PATIENT
  Sex: Male
  Weight: 80.726 kg

DRUGS (1)
  1. VIAGRA [Suspect]
     Indication: ERECTILE DYSFUNCTION
     Dosage: 100 MG ONCE IN EVERY 10 DAYS
     Route: 048

REACTIONS (1)
  - DRUG INEFFECTIVE [None]
